FAERS Safety Report 8300783-4 (Version None)
Quarter: 2012Q2

REPORT INFORMATION
  Report Type: 
  Country: None (occurrence: None)
  Receive Date: 20120420
  Receipt Date: 20120417
  Transmission Date: 20120825
  Serious: Yes (Hospitalization, Other)
  Sender: FDA-Public Use
  Company Number: PHHY2009PL42625

PATIENT
  Sex: Female
  Weight: 72 kg

DRUGS (5)
  1. FUROSEMIDE [Concomitant]
  2. GLEEVEC [Suspect]
     Indication: CHRONIC MYELOID LEUKAEMIA
     Dosage: 400 MG DAILY
     Route: 048
     Dates: start: 20080227, end: 20090126
  3. GLEEVEC [Suspect]
     Dosage: 400 MG,
     Dates: start: 20090409
  4. TARDYFERON-FOL [Concomitant]
  5. KALIPOZ [Concomitant]

REACTIONS (7)
  - SUBDURAL HAEMATOMA [None]
  - PANCYTOPENIA [None]
  - ANAEMIA [None]
  - CEREBRAL HAEMORRHAGE [None]
  - THROMBOCYTOPENIA [None]
  - HEAD INJURY [None]
  - POLYNEUROPATHY [None]
